FAERS Safety Report 11278400 (Version 2)
Quarter: 2015Q3

REPORT INFORMATION
  Report Type: Spontaneous
  Country: US (occurrence: US)
  Receive Date: 20150717
  Receipt Date: 20150814
  Transmission Date: 20151125
  Serious: Yes (Other)
  Sender: FDA-Public Use
  Company Number: US-BAYER-2015-379657

PATIENT
  Age: 49 Year
  Sex: Female
  Weight: 108 kg

DRUGS (4)
  1. LISINOPRIL. [Concomitant]
     Active Substance: LISINOPRIL
     Dosage: UNK
  2. ALEVE [Suspect]
     Active Substance: NAPROXEN SODIUM
     Indication: BACK PAIN
     Dosage: 1 DF, PRN
     Route: 048
     Dates: start: 2000, end: 201506
  3. LEVOTHYROXINE. [Concomitant]
     Active Substance: LEVOTHYROXINE
     Dosage: UNK
  4. ALEVE [Suspect]
     Active Substance: NAPROXEN SODIUM
     Indication: BACK PAIN
     Dosage: 1 DF, PRN
     Route: 048
     Dates: end: 20150616

REACTIONS (5)
  - Cardiomyopathy [Unknown]
  - Brain hypoxia [Unknown]
  - Conduction disorder [Recovered/Resolved]
  - Expired product administered [None]
  - Cardiac failure [Recovered/Resolved]

NARRATIVE: CASE EVENT DATE: 2014
